FAERS Safety Report 23920844 (Version 9)
Quarter: 2025Q2

REPORT INFORMATION
  Report Type: Spontaneous
  Country: US (occurrence: US)
  Receive Date: 20240530
  Receipt Date: 20250403
  Transmission Date: 20250717
  Serious: No
  Sender: KARYOPHARM THERAPEUTICS
  Company Number: US-KARYOPHARM-2024KPT001119

PATIENT

DRUGS (11)
  1. XPOVIO [Suspect]
     Active Substance: SELINEXOR
     Indication: Endometrial cancer
     Route: 048
     Dates: start: 202406, end: 20250124
  2. XPOVIO [Suspect]
     Active Substance: SELINEXOR
     Route: 048
     Dates: start: 20240531, end: 202406
  3. AMLODIPINE [Concomitant]
     Active Substance: AMLODIPINE BESYLATE
  4. CARBOPLATIN [Concomitant]
     Active Substance: CARBOPLATIN
  5. COSOPT [Concomitant]
     Active Substance: DORZOLAMIDE HYDROCHLORIDE\TIMOLOL MALEATE
  6. DEXAMETHASONE [Concomitant]
     Active Substance: DEXAMETHASONE
  7. HERCEPTIN [Concomitant]
     Active Substance: TRASTUZUMAB
  8. HYDROCHLOROTHIAZIDE [Concomitant]
     Active Substance: HYDROCHLOROTHIAZIDE
  9. JARDIANCE [Concomitant]
     Active Substance: EMPAGLIFLOZIN
  10. PACLITAXEL [Concomitant]
     Active Substance: PACLITAXEL
  11. XALATAN [Concomitant]
     Active Substance: LATANOPROST

REACTIONS (8)
  - Feeling abnormal [Not Recovered/Not Resolved]
  - Pruritus [Recovering/Resolving]
  - Hypotension [Not Recovered/Not Resolved]
  - Nausea [Not Recovered/Not Resolved]
  - Vomiting [Not Recovered/Not Resolved]
  - Fatigue [Not Recovered/Not Resolved]
  - Asthenia [Recovered/Resolved]
  - Off label use [Unknown]

NARRATIVE: CASE EVENT DATE: 20240101
